FAERS Safety Report 14541631 (Version 1)
Quarter: 2018Q1

REPORT INFORMATION
  Report Type: Spontaneous
  Country: FR (occurrence: FR)
  Receive Date: 20180216
  Receipt Date: 20180216
  Transmission Date: 20180509
  Serious: Yes (Hospitalization)
  Sender: FDA-Public Use
  Company Number: FR-SA-2018SA037528

PATIENT
  Age: 99 Year
  Sex: Female
  Weight: 50 kg

DRUGS (7)
  1. PLAVIX [Suspect]
     Active Substance: CLOPIDOGREL BISULFATE
     Route: 048
     Dates: start: 20170119, end: 20170122
  2. TRIMEBUTINE [Concomitant]
     Active Substance: TRIMEBUTINE
     Route: 048
     Dates: start: 20140103, end: 20170217
  3. LYRICA [Suspect]
     Active Substance: PREGABALIN
     Indication: NEURALGIA
     Route: 048
     Dates: start: 20170119, end: 20170122
  4. LERCAN [Suspect]
     Active Substance: LERCANIDIPINE
     Dosage: FORM: FILM COATED DIVISIBLE TABLET
     Route: 048
     Dates: start: 20140104, end: 20170122
  5. IXPRIM [Suspect]
     Active Substance: ACETAMINOPHEN\TRAMADOL HYDROCHLORIDE
     Indication: PAIN
     Route: 048
     Dates: start: 20160302, end: 20170122
  6. AZANTAC [Concomitant]
     Active Substance: RANITIDINE HYDROCHLORIDE
     Route: 048
     Dates: start: 20141120
  7. DOLIPRANE [Concomitant]
     Active Substance: ACETAMINOPHEN
     Indication: PAIN
     Route: 048
     Dates: start: 20160302

REACTIONS (2)
  - Confusional state [Recovered/Resolved]
  - Fall [Unknown]

NARRATIVE: CASE EVENT DATE: 20170122
